FAERS Safety Report 5795191-4 (Version None)
Quarter: 2008Q2

REPORT INFORMATION
  Report Type: 
  Country: None (occurrence: None)
  Receive Date: 20080626
  Receipt Date: 20080612
  Transmission Date: 20081010
  Serious: Yes (Other)
  Sender: FDA-Public Use
  Company Number: DSM-2008-00546

PATIENT
  Age: 61 Year
  Sex: Male
  Weight: 89 kg

DRUGS (3)
  1. OLMESARTAN MEDOXOMIL [Suspect]
     Indication: HYPERTENSION
     Dosage: (20 MG), ORAL
     Route: 048
     Dates: start: 20070901, end: 20080501
  2. FELODIPINE (FELODIPINE) (FELODIPINE) [Concomitant]
  3. PROPRANOLOL [Concomitant]

REACTIONS (2)
  - ANXIETY [None]
  - DEPRESSION [None]
